FAERS Safety Report 10792599 (Version 1)
Quarter: 2015Q1

REPORT INFORMATION
  Report Type: Spontaneous
  Country: BR (occurrence: BR)
  Receive Date: 20150213
  Receipt Date: 20150213
  Transmission Date: 20150721
  Serious: Yes (Other)
  Sender: FDA-Public Use
  Company Number: PHHY2015BR011232

PATIENT
  Sex: Female

DRUGS (3)
  1. EXELON [Suspect]
     Active Substance: RIVASTIGMINE TARTRATE
     Dosage: 1 DF, QD (3 MG)
     Route: 065
     Dates: start: 20141217
  2. EXELON [Suspect]
     Active Substance: RIVASTIGMINE TARTRATE
     Dosage: 1 DF, BID (4.5 MG, ONE CAPSULE IN THE MORNING AND ONE CAPSULE AT NIGHT, 28 CAPSULES)
     Route: 048
     Dates: start: 20150118, end: 20150123
  3. EXELON [Suspect]
     Active Substance: RIVASTIGMINE TARTRATE
     Indication: MEMORY IMPAIRMENT
     Dosage: 2 DF, QD (1.5 MG)
     Route: 065
     Dates: start: 20141108, end: 20141217

REACTIONS (16)
  - Abdominal pain [Recovering/Resolving]
  - Vomiting [Recovering/Resolving]
  - Diarrhoea [Recovering/Resolving]
  - Abdominal discomfort [Recovering/Resolving]
  - Flatulence [Recovering/Resolving]
  - Malaise [Not Recovered/Not Resolved]
  - Syncope [Recovering/Resolving]
  - Fall [Recovered/Resolved]
  - Chills [Recovering/Resolving]
  - Seizure [Recovering/Resolving]
  - Dysphonia [Recovering/Resolving]
  - Product use issue [Unknown]
  - Dysarthria [Recovering/Resolving]
  - Nausea [Recovering/Resolving]
  - Hypotension [Recovering/Resolving]
  - Personality disorder [Recovered/Resolved]

NARRATIVE: CASE EVENT DATE: 20150113
